FAERS Safety Report 5449517-1 (Version None)
Quarter: 2007Q3

REPORT INFORMATION
  Report Type: 
  Country: None (occurrence: None)
  Receive Date: 20070907
  Receipt Date: 20070822
  Transmission Date: 20080115
  Serious: Yes (Life-Threatening, Hospitalization)
  Sender: FDA-Public Use
  Company Number: 2007080033

PATIENT
  Age: 14 Year
  Sex: Female

DRUGS (6)
  1. FELBATOL [Suspect]
     Indication: STATUS EPILEPTICUS
     Dosage: 3600 MG (1200 MG, 3 IN 1 D)
     Dates: start: 20060606, end: 20060702
  2. PHENOBARBITAL TAB [Concomitant]
  3. KEPPRA [Concomitant]
  4. DILANTIN [Concomitant]
  5. PENTOBARBITAL CAP [Concomitant]
  6. VALPROIC ACID [Concomitant]

REACTIONS (2)
  - APLASTIC ANAEMIA [None]
  - PLATELET COUNT DECREASED [None]
